FAERS Safety Report 16264984 (Version 1)
Quarter: 2019Q2

REPORT INFORMATION
  Report Type: Spontaneous
  Country: US (occurrence: US)
  Receive Date: 20190502
  Receipt Date: 20190502
  Transmission Date: 20190711
  Serious: Yes (Hospitalization)
  Sender: FDA-Public Use
  Company Number: PHHY2019US098120

PATIENT
  Age: 88 Year
  Sex: Female

DRUGS (2)
  1. CARVEDILOL. [Suspect]
     Active Substance: CARVEDILOL
     Indication: ATRIAL FIBRILLATION
     Dosage: UNK UNK, QD
     Route: 065
  2. DIGOXIN. [Suspect]
     Active Substance: DIGOXIN
     Indication: ATRIAL FIBRILLATION
     Dosage: UNK UNK, QD
     Route: 065

REACTIONS (6)
  - Product use in unapproved indication [Unknown]
  - Toxicity to various agents [Unknown]
  - Bradyarrhythmia [Unknown]
  - Syncope [Unknown]
  - Tachyarrhythmia [Unknown]
  - Atrioventricular block complete [Unknown]
